FAERS Safety Report 20171917 (Version 3)
Quarter: 2021Q4

REPORT INFORMATION
  Report Type: Spontaneous
  Country: US (occurrence: US)
  Receive Date: 20211210
  Receipt Date: 20211214
  Transmission Date: 20220303
  Serious: Yes (Other)
  Sender: FDA-Public Use
  Company Number: US-TAKEDA-2021TUS028647

PATIENT
  Age: 45 Year
  Sex: Female

DRUGS (23)
  1. PREVACID [Suspect]
     Active Substance: LANSOPRAZOLE
     Indication: Crohn^s disease
     Dosage: 30 MG, 1X/DAY
     Dates: start: 2005, end: 2018
  2. PROTONIX [Suspect]
     Active Substance: PANTOPRAZOLE SODIUM
     Indication: Crohn^s disease
     Dosage: 40 MG, 1X/DAY
     Dates: end: 2019
  3. PROTONIX [Suspect]
     Active Substance: PANTOPRAZOLE SODIUM
     Indication: Abdominal discomfort
     Dosage: 40 MG
     Route: 042
     Dates: start: 2010
  4. PROTONIX [Suspect]
     Active Substance: PANTOPRAZOLE SODIUM
     Dosage: 40 MG
     Route: 042
     Dates: start: 2016
  5. PROTONIX [Suspect]
     Active Substance: PANTOPRAZOLE SODIUM
     Dosage: 40 MG
     Route: 042
     Dates: start: 2019
  6. PANTOPRAZOLE [Suspect]
     Active Substance: PANTOPRAZOLE
     Indication: Abdominal discomfort
     Dosage: 40 MG, 1X/DAY
     Dates: start: 2016, end: 2019
  7. PREVACID 24 HR [Suspect]
     Active Substance: LANSOPRAZOLE
     Indication: Crohn^s disease
     Dosage: UNK
     Route: 048
     Dates: start: 2005, end: 2018
  8. PREVACID 24 HR [Suspect]
     Active Substance: LANSOPRAZOLE
     Dosage: RECOMMENDED DOSE
     Dates: start: 2009, end: 2018
  9. DEXILANT [Suspect]
     Active Substance: DEXLANSOPRAZOLE
     Indication: Crohn^s disease
     Dosage: UNK
     Route: 048
     Dates: start: 2005, end: 2018
  10. DEXILANT [Suspect]
     Active Substance: DEXLANSOPRAZOLE
     Dosage: 60 MG, 1X/DAY
     Dates: start: 2009, end: 2018
  11. NEXIUM [Suspect]
     Active Substance: ESOMEPRAZOLE MAGNESIUM
     Indication: Crohn^s disease
     Dosage: 20-40 MG, 1X/DAY
     Dates: start: 2005, end: 2018
  12. PRILOSEC [Suspect]
     Active Substance: OMEPRAZOLE MAGNESIUM
     Indication: Crohn^s disease
     Dosage: UNK
     Route: 048
     Dates: start: 2005, end: 2018
  13. PRILOSEC [Suspect]
     Active Substance: OMEPRAZOLE MAGNESIUM
     Dosage: 40 MG, 2X/DAY
     Dates: start: 2005
  14. OMEPRAZOLE [Suspect]
     Active Substance: OMEPRAZOLE
     Indication: Crohn^s disease
     Dosage: 40 MG, 1X/DAY
     Dates: start: 2013, end: 2020
  15. TRAMADOL [Concomitant]
     Active Substance: TRAMADOL
     Indication: Pain
     Dosage: UNK
     Dates: start: 2008
  16. TRAMADOL [Concomitant]
     Active Substance: TRAMADOL
     Dosage: UNK
     Dates: start: 2019, end: 2020
  17. DOXEPIN [Concomitant]
     Active Substance: DOXEPIN
     Indication: Depression
     Dosage: UNK
     Dates: start: 2008
  18. FLUOXETINE [Concomitant]
     Active Substance: FLUOXETINE HYDROCHLORIDE
     Indication: Depression
     Dosage: UNK
     Dates: start: 2018, end: 2020
  19. MELOXICAM [Concomitant]
     Active Substance: MELOXICAM
     Indication: Inflammation
     Dosage: UNK
     Dates: start: 2018, end: 2019
  20. AMOXICILLIN [Concomitant]
     Active Substance: AMOXICILLIN
     Indication: Infection
     Dosage: UNK
     Dates: start: 2019
  21. IBUPROFEN [Concomitant]
     Active Substance: IBUPROFEN
     Indication: Pain
     Dosage: UNK
  22. FAMOTIDINE [Concomitant]
     Active Substance: FAMOTIDINE
     Dosage: UNK
     Dates: start: 2019, end: 2021
  23. SULFAMETHOXAZOLE [Concomitant]
     Active Substance: SULFAMETHOXAZOLE
     Indication: Infection
     Dosage: UNK
     Dates: start: 2019

REACTIONS (4)
  - Chronic kidney disease [Not Recovered/Not Resolved]
  - Crohn^s disease [Not Recovered/Not Resolved]
  - Abdominal discomfort [Not Recovered/Not Resolved]
  - Condition aggravated [Not Recovered/Not Resolved]

NARRATIVE: CASE EVENT DATE: 20090101
